FAERS Safety Report 13625006 (Version 2)
Quarter: 2017Q3

REPORT INFORMATION
  Report Type: Spontaneous
  Country: US (occurrence: US)
  Receive Date: 20170608
  Receipt Date: 20170907
  Transmission Date: 20171127
  Serious: No
  Sender: FDA-Public Use
  Company Number: US-PFIZER INC-2017252468

PATIENT
  Sex: Female

DRUGS (5)
  1. ZYRTEC [Suspect]
     Active Substance: CETIRIZINE HYDROCHLORIDE
     Indication: SEASONAL ALLERGY
     Dosage: UNK UNK, 1X/DAY
     Dates: start: 2001, end: 2011
  2. SYNTHROID [Concomitant]
     Active Substance: LEVOTHYROXINE SODIUM
     Indication: PROPHYLAXIS
     Dosage: UNK
     Dates: start: 2002
  3. IBUPROFEN. [Suspect]
     Active Substance: IBUPROFEN
     Indication: NECK PAIN
     Dosage: 200 MG, AS NEEDED, (ONLY WHEN NEEDED TWICE A MONTH)
     Dates: start: 2007
  4. ADVIL [Suspect]
     Active Substance: IBUPROFEN
     Dosage: UNK
  5. BENADRYL [Suspect]
     Active Substance: DIPHENHYDRAMINE HYDROCHLORIDE
     Indication: SEASONAL ALLERGY
     Dosage: UNK UNK, AS NEEDED, (ONLY WHEN NEEDED)
     Dates: start: 1987, end: 2003

REACTIONS (1)
  - Somnolence [Not Recovered/Not Resolved]
